FAERS Safety Report 17104813 (Version 1)
Quarter: 2019Q4

REPORT INFORMATION
  Report Type: Spontaneous
  Country: US (occurrence: US)
  Receive Date: 20191203
  Receipt Date: 20191203
  Transmission Date: 20200122
  Serious: Yes (Death, Other)
  Sender: FDA-Public Use
  Company Number: US-ROCHE-2482170

PATIENT
  Age: 72 Year
  Sex: Male
  Weight: 99.88 kg

DRUGS (1)
  1. ACTEMRA [Suspect]
     Active Substance: TOCILIZUMAB
     Indication: RHEUMATOID ARTHRITIS
     Dosage: ONGOING: NO
     Route: 058

REACTIONS (3)
  - Death [Fatal]
  - Biliary cancer metastatic [Unknown]
  - Weight decreased [Unknown]

NARRATIVE: CASE EVENT DATE: 20190426
